FAERS Safety Report 16253901 (Version 1)
Quarter: 2019Q2

REPORT INFORMATION
  Report Type: Spontaneous
  Country: DE (occurrence: DE)
  Receive Date: 20190430
  Receipt Date: 20190430
  Transmission Date: 20190711
  Serious: Yes (Hospitalization)
  Sender: FDA-Public Use
  Company Number: DE-TEVA-2019-DE-1042015

PATIENT
  Age: 4 Year
  Sex: Male
  Weight: 15 kg

DRUGS (6)
  1. PRIMIDON [Concomitant]
     Active Substance: PRIMIDONE
     Dates: start: 201809
  2. LUMINAL [Concomitant]
     Active Substance: PHENOBARBITAL SODIUM
     Dosage: 300 MILLIGRAMS.
     Route: 042
     Dates: start: 20180921
  3. RIVOTRIL [Concomitant]
     Active Substance: CLONAZEPAM
     Dosage: 3 MILLIGRAMS.
     Route: 042
     Dates: start: 20180921
  4. VALPROAT [Suspect]
     Active Substance: VALPROATE SODIUM
     Route: 048
     Dates: start: 201809
  5. KEPPRA [Concomitant]
     Active Substance: LEVETIRACETAM
     Dosage: 400 MILLIGRAM DAILY; DAILY DOSE: 400 MG MILLGRAM(S) EVERY DAYS
  6. DIAZEPAM. [Concomitant]
     Active Substance: DIAZEPAM
     Dosage: 10 MILLIGRAMS
     Route: 054
     Dates: start: 20180921

REACTIONS (1)
  - Neutropenia [Recovered/Resolved]

NARRATIVE: CASE EVENT DATE: 20180921
